FAERS Safety Report 8085410-6 (Version None)
Quarter: 2012Q1

REPORT INFORMATION
  Report Type: 
  Country: None (occurrence: None)
  Receive Date: 20120128
  Receipt Date: 20110422
  Transmission Date: 20120608
  Serious: No
  Sender: FDA-Public Use
  Company Number: US-ABBOTT-11P-163-0699925-00

PATIENT
  Sex: Male
  Weight: 81.72 kg

DRUGS (8)
  1. RANITIDINE [Concomitant]
     Indication: GASTROOESOPHAGEAL REFLUX DISEASE
     Route: 048
  2. UNKNOWN OTHER MEDICATION [Concomitant]
     Indication: HYPERTENSION
  3. BENADRYL [Concomitant]
     Indication: PRURITUS
     Route: 048
     Dates: end: 20110106
  4. HUMIRA [Suspect]
     Indication: PSORIASIS
     Route: 058
     Dates: start: 20110106, end: 20110106
  5. HUMIRA [Suspect]
     Route: 058
     Dates: start: 20110101
  6. BENADRYL [Concomitant]
     Dosage: 1 EVERY 2 DAYS ALTERNATE W/HYDROXYZINE
     Route: 048
     Dates: start: 20110106
  7. LISINOPRIL AND HYDROCHLOROTHIAZIDE [Concomitant]
     Indication: HYPERTENSION
     Dosage: 20/12.5 MG 1 IN 1 DAY
     Route: 048
     Dates: start: 20060101
  8. HYDROXYZINE [Concomitant]
     Indication: PRURITUS
     Dosage: 1 EVERY 2 DAYS ALT W/BENADRYL OTC
     Route: 048
     Dates: start: 20110106

REACTIONS (1)
  - OEDEMA PERIPHERAL [None]
